FAERS Safety Report 19625469 (Version 1)
Quarter: 2021Q3

REPORT INFORMATION
  Report Type: Spontaneous
  Country: US (occurrence: US)
  Receive Date: 20210728
  Receipt Date: 20210728
  Transmission Date: 20211014
  Serious: Yes (Hospitalization, Disabling)
  Sender: FDA-Public Use
  Company Number: None

PATIENT
  Age: 70 Year
  Sex: Female
  Weight: 71.67 kg

DRUGS (9)
  1. GAMMAGARD [Concomitant]
     Active Substance: HUMAN IMMUNOGLOBULIN G
  2. ACYCLOVIR. [Concomitant]
     Active Substance: ACYCLOVIR
  3. ASPIRIN. [Concomitant]
     Active Substance: ASPIRIN
  4. PANTOPRAZOLE [Concomitant]
     Active Substance: PANTOPRAZOLE
  5. ZOMETA (ZOLEDRONIC ACID) (GENERIC) [Suspect]
     Active Substance: ZOLEDRONIC ACID
     Indication: PLASMA CELL MYELOMA
     Dosage: ?          OTHER FREQUENCY:1X MONTH, THEN EVE;?
     Dates: start: 2007, end: 2018
  6. LISINOPRIL. [Concomitant]
     Active Substance: LISINOPRIL
  7. POMALYST [Concomitant]
     Active Substance: POMALIDOMIDE
  8. CALCIUM/VIT. D [Concomitant]
  9. HYDROCHLOROTHIAZIDE. [Concomitant]
     Active Substance: HYDROCHLOROTHIAZIDE

REACTIONS (3)
  - Pain [None]
  - Fall [None]
  - Femur fracture [None]

NARRATIVE: CASE EVENT DATE: 20210518
